FAERS Safety Report 21879322 (Version 3)
Quarter: 2023Q1

REPORT INFORMATION
  Report Type: Spontaneous
  Country: US (occurrence: US)
  Receive Date: 20230118
  Receipt Date: 20230228
  Transmission Date: 20230417
  Serious: Yes (Hospitalization)
  Sender: FDA-Public Use
  Company Number: US-PURDUE PHARMA-USA-2023-0299346

PATIENT
  Sex: Female
  Weight: 53.07 kg

DRUGS (2)
  1. SENOKOT [Suspect]
     Active Substance: SENNOSIDES
     Indication: Constipation
     Dosage: BID
     Route: 048
  2. SENOKOT [Suspect]
     Active Substance: SENNOSIDES
     Dosage: 1 TABLET, DAILY (SINCE THE SUMMER)
     Route: 048

REACTIONS (5)
  - Hospitalisation [Unknown]
  - Nausea [Unknown]
  - Gastrointestinal disorder [Unknown]
  - Weight decreased [Unknown]
  - Drug hypersensitivity [Unknown]
